FAERS Safety Report 5078005-X (Version None)
Quarter: 2006Q3

REPORT INFORMATION
  Report Type: 
  Country: None (occurrence: None)
  Receive Date: 20060811
  Receipt Date: 20060731
  Transmission Date: 20061208
  Serious: Yes (Death)
  Sender: FDA-Public Use
  Company Number: PH-JNJFOC-20060800065

PATIENT
  Age: 25 Year
  Sex: Male

DRUGS (7)
  1. RISPERDAL CONSTA [Suspect]
     Indication: SCHIZOPHRENIA
     Route: 030
  2. RISPERDAL [Suspect]
     Indication: SCHIZOPHRENIA
     Route: 048
  3. RISPERDAL [Suspect]
     Route: 048
  4. CEFTRIAXONE [Concomitant]
     Indication: ANTIBIOTIC PROPHYLAXIS
  5. DOXYCYCLINE [Concomitant]
     Indication: ANTIBIOTIC PROPHYLAXIS
  6. OLANZAPINE [Concomitant]
     Indication: PSYCHOTIC DISORDER
  7. NOZINAN [Concomitant]
     Indication: SEDATION

REACTIONS (3)
  - PULMONARY EMBOLISM [None]
  - PYREXIA [None]
  - SUICIDAL IDEATION [None]
